FAERS Safety Report 4983273-6 (Version None)
Quarter: 2006Q2

REPORT INFORMATION
  Report Type: 
  Country: None (occurrence: None)
  Receive Date: 20060419
  Receipt Date: 20060327
  Transmission Date: 20061013
  Serious: No
  Sender: FDA-Public Use
  Company Number: AU200603006942

PATIENT
  Age: 80 Year
  Sex: Male

DRUGS (2)
  1. CIALIS [Suspect]
     Indication: ERECTILE DYSFUNCTION
     Dates: start: 20060306
  2. EPILIM (VALPROATE SODIUM) [Concomitant]

REACTIONS (2)
  - GLARE [None]
  - VISUAL DISTURBANCE [None]
